FAERS Safety Report 7386373-9 (Version None)
Quarter: 2011Q1

REPORT INFORMATION
  Report Type: 
  Country: None (occurrence: None)
  Receive Date: 20110331
  Receipt Date: 20110318
  Transmission Date: 20110831
  Serious: Yes (Other)
  Sender: FDA-Public Use
  Company Number: PHHY2011JP20599

PATIENT
  Age: 3 Year
  Sex: Male
  Weight: 15 kg

DRUGS (4)
  1. PREDONINE [Suspect]
     Indication: NEPHROTIC SYNDROME
     Dosage: 40 MG,
     Route: 048
  2. NORVASC [Concomitant]
     Indication: HYPERTENSION
  3. NEORAL [Suspect]
     Indication: NEPHROTIC SYNDROME
     Dosage: 40 MG,
     Route: 048
  4. STEROIDS NOS [Concomitant]
     Dosage: UNK

REACTIONS (5)
  - INTRAOCULAR PRESSURE INCREASED [None]
  - OSTEOPOROSIS [None]
  - NEPHROTIC SYNDROME [None]
  - WEIGHT INCREASED [None]
  - HYPERTENSION [None]
